FAERS Safety Report 5025385-7 (Version None)
Quarter: 2006Q2

REPORT INFORMATION
  Report Type: 
  Country: None (occurrence: None)
  Receive Date: 20060608
  Receipt Date: 20060530
  Transmission Date: 20061013
  Serious: Yes (Hospitalization, Other)
  Sender: FDA-Public Use
  Company Number: 2006049102

PATIENT
  Age: 62 Year
  Sex: Male
  Weight: 83.0083 kg

DRUGS (6)
  1. VIAGRA [Suspect]
     Indication: ILL-DEFINED DISORDER
     Dosage: 50 MG (50 MG, 1 AS NECESSARY), ORAL
     Route: 048
     Dates: start: 20000101
  2. LAMICTAL [Concomitant]
  3. DILTIAZEM [Concomitant]
  4. HYDROCHLOROTHIAZIDE [Concomitant]
  5. PRIMIDONE [Concomitant]
  6. CARBAMAZEPINE [Concomitant]

REACTIONS (9)
  - ABASIA [None]
  - ASTHENIA [None]
  - CHOLELITHIASIS [None]
  - DRUG INEFFECTIVE [None]
  - GASTROINTESTINAL DISORDER [None]
  - INFECTION [None]
  - INTESTINAL ADHESION LYSIS [None]
  - MALAISE [None]
  - SMALL INTESTINAL OBSTRUCTION [None]
